FAERS Safety Report 17963320 (Version 1)
Quarter: 2020Q2

REPORT INFORMATION
  Report Type: Spontaneous
  Country: US (occurrence: US)
  Receive Date: 20200630
  Receipt Date: 20200630
  Transmission Date: 20200714
  Serious: Yes (Other)
  Sender: FDA-Public Use
  Company Number: None

PATIENT
  Age: 78 Year
  Sex: Male

DRUGS (6)
  1. ATORVASTATIN 40MG [Concomitant]
     Active Substance: ATORVASTATIN
  2. SIROLIMUS 0.5MG [Concomitant]
     Active Substance: SIROLIMUS
  3. PREDNISONE 5MG [Concomitant]
     Active Substance: PREDNISONE
  4. PANTOPRAZOLE 40MG [Concomitant]
     Active Substance: PANTOPRAZOLE SODIUM
  5. RANITIDINE. [Concomitant]
     Active Substance: RANITIDINE
  6. MYFORTIC [Suspect]
     Active Substance: MYCOPHENOLATE SODIUM
     Indication: RENAL TRANSPLANT
     Route: 048
     Dates: start: 20190205, end: 20200615

REACTIONS (2)
  - Prostate cancer [None]
  - Therapy interrupted [None]

NARRATIVE: CASE EVENT DATE: 20200615
